FAERS Safety Report 17966073 (Version 10)
Quarter: 2025Q4

REPORT INFORMATION
  Report Type: Other
  Country: CA (occurrence: CA)
  Receive Date: 20200701
  Receipt Date: 20251202
  Transmission Date: 20260118
  Serious: Yes (Other)
  Sender: GLENMARK
  Company Number: CA-GLENMARK PHARMACEUTICALS-2020GMK048311

PATIENT
  Age: 56 Year
  Sex: Female

DRUGS (217)
  1. GABAPENTIN [Interacting]
     Active Substance: GABAPENTIN
     Indication: Migraine
     Dosage: UNK
     Route: 065
  2. GABAPENTIN [Interacting]
     Active Substance: GABAPENTIN
     Dosage: UNK
     Route: 065
  3. GABAPENTIN [Interacting]
     Active Substance: GABAPENTIN
     Indication: Migraine
     Dosage: UNK
     Route: 065
  4. GABAPENTIN [Interacting]
     Active Substance: GABAPENTIN
     Dosage: UNK
     Route: 065
  5. GABAPENTIN [Interacting]
     Active Substance: GABAPENTIN
     Dosage: UNK
     Route: 065
  6. GABAPENTIN [Interacting]
     Active Substance: GABAPENTIN
     Dosage: UNK
     Route: 065
  7. GABAPENTIN [Interacting]
     Active Substance: GABAPENTIN
     Dosage: UNK
     Route: 065
  8. TOPIRAMATE [Interacting]
     Active Substance: TOPIRAMATE
     Indication: Migraine
     Dosage: UNK
     Route: 065
  9. TOPIRAMATE [Interacting]
     Active Substance: TOPIRAMATE
     Dosage: UNK
     Route: 065
  10. TOPIRAMATE [Interacting]
     Active Substance: TOPIRAMATE
     Dosage: UNK
     Route: 065
  11. TOPIRAMATE [Interacting]
     Active Substance: TOPIRAMATE
     Dosage: UNK
     Route: 065
  12. TOPIRAMATE [Interacting]
     Active Substance: TOPIRAMATE
     Indication: Migraine
     Dosage: UNK
     Route: 048
  13. AMITRIPTYLINE [Interacting]
     Active Substance: AMITRIPTYLINE
     Indication: Migraine
     Dosage: UNK
     Route: 065
  14. CANDESARTAN CILEXETIL [Interacting]
     Active Substance: CANDESARTAN CILEXETIL
     Indication: Migraine
     Dosage: UNK
     Route: 048
  15. DULOXETINE [Interacting]
     Active Substance: DULOXETINE
     Indication: Migraine
     Dosage: UNK
     Route: 065
  16. MIRTAZAPINE [Interacting]
     Active Substance: MIRTAZAPINE
     Indication: Migraine
     Dosage: UNK
     Route: 065
  17. MIRTAZAPINE [Interacting]
     Active Substance: MIRTAZAPINE
     Dosage: UNK
     Route: 048
  18. MIRTAZAPINE [Interacting]
     Active Substance: MIRTAZAPINE
     Dosage: UNK
     Route: 065
  19. MIRTAZAPINE [Interacting]
     Active Substance: MIRTAZAPINE
     Dosage: UNK
     Route: 065
  20. MIRTAZAPINE [Interacting]
     Active Substance: MIRTAZAPINE
     Dosage: UNK
     Route: 065
  21. MIRTAZAPINE [Interacting]
     Active Substance: MIRTAZAPINE
     Dosage: UNK
     Route: 065
  22. ONDANSETRON [Interacting]
     Active Substance: ONDANSETRON
     Indication: Migraine
     Dosage: UNK
     Route: 065
  23. ONDANSETRON [Interacting]
     Active Substance: ONDANSETRON
     Dosage: UNK
     Route: 065
  24. ONDANSETRON [Interacting]
     Active Substance: ONDANSETRON
     Dosage: UNK
     Route: 065
  25. ONDANSETRON [Interacting]
     Active Substance: ONDANSETRON
     Dosage: UNK
     Route: 065
  26. OXYCODONE [Interacting]
     Active Substance: OXYCODONE
     Indication: Migraine
     Dosage: UNK
     Route: 065
  27. PERINDOPRIL ERBUMINE [Interacting]
     Active Substance: PERINDOPRIL ERBUMINE
     Indication: Toxicity to various agents
     Dosage: UNK
     Route: 065
  28. PERINDOPRIL ERBUMINE [Interacting]
     Active Substance: PERINDOPRIL ERBUMINE
     Indication: Nephropathy toxic
     Dosage: UNK
     Route: 065
  29. PERINDOPRIL ERBUMINE [Interacting]
     Active Substance: PERINDOPRIL ERBUMINE
     Indication: Hypertension
     Dosage: UNK
     Route: 065
  30. PERINDOPRIL ERBUMINE [Interacting]
     Active Substance: PERINDOPRIL ERBUMINE
     Indication: Migraine
     Dosage: UNK
     Route: 065
  31. PERINDOPRIL ERBUMINE [Interacting]
     Active Substance: PERINDOPRIL ERBUMINE
     Dosage: UNK
     Route: 065
  32. PERINDOPRIL ERBUMINE [Interacting]
     Active Substance: PERINDOPRIL ERBUMINE
     Dosage: UNK
     Route: 065
  33. PERINDOPRIL ERBUMINE [Interacting]
     Active Substance: PERINDOPRIL ERBUMINE
     Dosage: UNK
     Route: 065
  34. PERINDOPRIL ERBUMINE [Interacting]
     Active Substance: PERINDOPRIL ERBUMINE
     Dosage: UNK
     Route: 065
  35. PERINDOPRIL ERBUMINE [Interacting]
     Active Substance: PERINDOPRIL ERBUMINE
     Dosage: UNK
     Route: 065
  36. PERINDOPRIL ERBUMINE [Interacting]
     Active Substance: PERINDOPRIL ERBUMINE
     Dosage: UNK
     Route: 065
  37. PERINDOPRIL ERBUMINE [Interacting]
     Active Substance: PERINDOPRIL ERBUMINE
     Dosage: UNK
     Route: 065
  38. PERINDOPRIL ERBUMINE [Interacting]
     Active Substance: PERINDOPRIL ERBUMINE
     Dosage: UNK
     Route: 065
  39. PERINDOPRIL ERBUMINE [Interacting]
     Active Substance: PERINDOPRIL ERBUMINE
     Dosage: UNK
     Route: 065
  40. PERINDOPRIL ERBUMINE [Interacting]
     Active Substance: PERINDOPRIL ERBUMINE
     Dosage: UNK
     Route: 065
  41. PERINDOPRIL ERBUMINE [Interacting]
     Active Substance: PERINDOPRIL ERBUMINE
     Dosage: UNK
     Route: 065
  42. PERINDOPRIL ERBUMINE [Interacting]
     Active Substance: PERINDOPRIL ERBUMINE
     Dosage: UNK
     Route: 065
  43. PERINDOPRIL ERBUMINE [Interacting]
     Active Substance: PERINDOPRIL ERBUMINE
     Dosage: UNK
     Route: 065
  44. PERINDOPRIL ERBUMINE [Interacting]
     Active Substance: PERINDOPRIL ERBUMINE
     Dosage: UNK
     Route: 065
  45. PERINDOPRIL ERBUMINE [Interacting]
     Active Substance: PERINDOPRIL ERBUMINE
     Dosage: UNK
     Route: 065
  46. PERINDOPRIL ERBUMINE [Interacting]
     Active Substance: PERINDOPRIL ERBUMINE
     Dosage: UNK
     Route: 065
  47. PERINDOPRIL ERBUMINE [Interacting]
     Active Substance: PERINDOPRIL ERBUMINE
     Dosage: UNK
     Route: 065
  48. PERINDOPRIL ERBUMINE [Interacting]
     Active Substance: PERINDOPRIL ERBUMINE
     Dosage: UNK
     Route: 065
  49. PERINDOPRIL ERBUMINE [Interacting]
     Active Substance: PERINDOPRIL ERBUMINE
     Dosage: UNK
     Route: 065
  50. PERINDOPRIL ERBUMINE [Interacting]
     Active Substance: PERINDOPRIL ERBUMINE
     Dosage: UNK
     Route: 065
  51. PERINDOPRIL ERBUMINE [Interacting]
     Active Substance: PERINDOPRIL ERBUMINE
     Dosage: UNK
     Route: 065
  52. PERINDOPRIL ERBUMINE [Interacting]
     Active Substance: PERINDOPRIL ERBUMINE
     Dosage: UNK
     Route: 065
  53. PERINDOPRIL ERBUMINE [Interacting]
     Active Substance: PERINDOPRIL ERBUMINE
     Dosage: UNK
     Route: 065
  54. PERINDOPRIL ERBUMINE [Interacting]
     Active Substance: PERINDOPRIL ERBUMINE
     Dosage: UNK
     Route: 065
  55. PERINDOPRIL ERBUMINE [Interacting]
     Active Substance: PERINDOPRIL ERBUMINE
     Dosage: UNK
     Route: 065
  56. PERINDOPRIL ERBUMINE [Interacting]
     Active Substance: PERINDOPRIL ERBUMINE
     Dosage: UNK
     Route: 047
  57. PERINDOPRIL ERBUMINE [Interacting]
     Active Substance: PERINDOPRIL ERBUMINE
     Dosage: UNK
     Route: 047
  58. PERINDOPRIL ERBUMINE [Interacting]
     Active Substance: PERINDOPRIL ERBUMINE
     Dosage: UNK
     Route: 065
  59. PROPRANOLOL [Interacting]
     Active Substance: PROPRANOLOL HYDROCHLORIDE
     Indication: Toxicity to various agents
     Dosage: UNK
     Route: 065
  60. PROPRANOLOL [Interacting]
     Active Substance: PROPRANOLOL HYDROCHLORIDE
     Indication: Nephropathy toxic
     Dosage: UNK
     Route: 048
  61. PROPRANOLOL [Interacting]
     Active Substance: PROPRANOLOL HYDROCHLORIDE
     Indication: Hypertension
     Dosage: 120 MILLIGRAM, OD (1 EVERY 1 DAYS)
     Route: 065
  62. PROPRANOLOL [Interacting]
     Active Substance: PROPRANOLOL HYDROCHLORIDE
     Indication: Migraine
     Dosage: 120 MILLIGRAM, OD (1 EVERY 1 DAYS)
     Route: 065
  63. PROPRANOLOL [Interacting]
     Active Substance: PROPRANOLOL HYDROCHLORIDE
     Dosage: 120 MILLIGRAM, OD (1 EVERY 1 DAYS)
     Route: 065
  64. PROPRANOLOL [Interacting]
     Active Substance: PROPRANOLOL HYDROCHLORIDE
     Dosage: 120 MILLIGRAM, OD (1 EVERY 1 DAYS)
     Route: 065
  65. PROPRANOLOL [Interacting]
     Active Substance: PROPRANOLOL HYDROCHLORIDE
     Dosage: UNK
     Route: 065
  66. PROPRANOLOL [Interacting]
     Active Substance: PROPRANOLOL HYDROCHLORIDE
     Dosage: UNK
     Route: 065
  67. PROPRANOLOL [Interacting]
     Active Substance: PROPRANOLOL HYDROCHLORIDE
     Dosage: 120 MILLIGRAM, OD (1 EVERY 1 DAYS)
     Route: 048
  68. CANDESARTAN [Interacting]
     Active Substance: CANDESARTAN
     Indication: Migraine
     Dosage: UNK
     Route: 065
  69. CANDESARTAN [Interacting]
     Active Substance: CANDESARTAN
     Dosage: UNK
     Route: 048
  70. CANDESARTAN [Interacting]
     Active Substance: CANDESARTAN
     Dosage: UNK
     Route: 065
  71. CANDESARTAN [Interacting]
     Active Substance: CANDESARTAN
     Dosage: UNK
     Route: 065
  72. CANDESARTAN [Interacting]
     Active Substance: CANDESARTAN
     Dosage: UNK
     Route: 065
  73. DULOXETINE HYDROCHLORIDE [Interacting]
     Active Substance: DULOXETINE HYDROCHLORIDE
     Indication: Migraine
     Dosage: UNK
     Route: 065
  74. ONDANSETRON HYDROCHLORIDE [Interacting]
     Active Substance: ONDANSETRON HYDROCHLORIDE
     Indication: Migraine
     Dosage: UNK
     Route: 065
  75. ONDANSETRON HYDROCHLORIDE [Interacting]
     Active Substance: ONDANSETRON HYDROCHLORIDE
     Dosage: UNK
     Route: 065
  76. PROPRANOLOL HYDROCHLORIDE [Suspect]
     Active Substance: PROPRANOLOL HYDROCHLORIDE
     Indication: Toxicity to various agents
     Dosage: UNK
     Route: 065
  77. PROPRANOLOL HYDROCHLORIDE [Suspect]
     Active Substance: PROPRANOLOL HYDROCHLORIDE
     Indication: Nephropathy toxic
     Dosage: UNK
     Route: 065
  78. PROPRANOLOL HYDROCHLORIDE [Suspect]
     Active Substance: PROPRANOLOL HYDROCHLORIDE
     Indication: Hypertension
     Dosage: UNK
     Route: 065
  79. ONDANSETRON HYDROCHLORIDE [Suspect]
     Active Substance: ONDANSETRON HYDROCHLORIDE
     Indication: Migraine
     Dosage: UNK
     Route: 065
  80. ONDANSETRON HYDROCHLORIDE [Suspect]
     Active Substance: ONDANSETRON HYDROCHLORIDE
     Dosage: UNK
     Route: 065
  81. PERINDOPRIL [Suspect]
     Active Substance: PERINDOPRIL
     Indication: Toxicity to various agents
     Dosage: UNK
     Route: 065
  82. PERINDOPRIL [Suspect]
     Active Substance: PERINDOPRIL
     Indication: Nephropathy toxic
     Dosage: UNK
     Route: 065
  83. PERINDOPRIL [Suspect]
     Active Substance: PERINDOPRIL
     Indication: Hypertension
     Dosage: UNK
     Route: 065
  84. PERINDOPRIL [Suspect]
     Active Substance: PERINDOPRIL
     Indication: Migraine
     Dosage: UNK
     Route: 065
  85. PERINDOPRIL [Suspect]
     Active Substance: PERINDOPRIL
     Dosage: UNK
     Route: 065
  86. PERINDOPRIL [Suspect]
     Active Substance: PERINDOPRIL
     Dosage: UNK
     Route: 065
  87. PERINDOPRIL [Suspect]
     Active Substance: PERINDOPRIL
     Dosage: UNK
     Route: 065
  88. PERINDOPRIL [Suspect]
     Active Substance: PERINDOPRIL
     Dosage: UNK
     Route: 065
  89. PERINDOPRIL [Suspect]
     Active Substance: PERINDOPRIL
     Dosage: 120 MILLIGRAM, 1 EVERY 1 DAYS
     Route: 065
  90. PERINDOPRIL [Suspect]
     Active Substance: PERINDOPRIL
     Dosage: UNK
     Route: 065
  91. PERINDOPRIL [Suspect]
     Active Substance: PERINDOPRIL
     Dosage: UNK
     Route: 065
  92. PERINDOPRIL [Suspect]
     Active Substance: PERINDOPRIL
     Dosage: UNK
     Route: 065
  93. PERINDOPRIL [Suspect]
     Active Substance: PERINDOPRIL
     Dosage: UNK
     Route: 065
  94. PERINDOPRIL [Interacting]
     Active Substance: PERINDOPRIL
     Indication: Toxicity to various agents
     Dosage: UNK
     Route: 065
  95. PERINDOPRIL [Interacting]
     Active Substance: PERINDOPRIL
     Indication: Nephropathy toxic
     Dosage: UNK
     Route: 065
  96. PERINDOPRIL [Interacting]
     Active Substance: PERINDOPRIL
     Indication: Hypertension
     Dosage: UNK
     Route: 065
  97. PERINDOPRIL [Interacting]
     Active Substance: PERINDOPRIL
     Indication: Migraine
     Dosage: UNK
     Route: 065
  98. PERINDOPRIL [Interacting]
     Active Substance: PERINDOPRIL
     Indication: Nephropathy
     Dosage: UNK
     Route: 065
  99. PERINDOPRIL [Interacting]
     Active Substance: PERINDOPRIL
     Dosage: UNK
     Route: 065
  100. PERINDOPRIL [Interacting]
     Active Substance: PERINDOPRIL
     Dosage: UNK
     Route: 065
  101. PERINDOPRIL [Interacting]
     Active Substance: PERINDOPRIL
     Dosage: UNK
     Route: 065
  102. PERINDOPRIL [Interacting]
     Active Substance: PERINDOPRIL
     Dosage: UNK
     Route: 065
  103. PERINDOPRIL [Interacting]
     Active Substance: PERINDOPRIL
     Dosage: UNK
     Route: 065
  104. PERINDOPRIL [Interacting]
     Active Substance: PERINDOPRIL
     Dosage: UNK
     Route: 065
  105. PERINDOPRIL [Interacting]
     Active Substance: PERINDOPRIL
     Dosage: UNK
     Route: 065
  106. PERINDOPRIL [Interacting]
     Active Substance: PERINDOPRIL
     Dosage: 120 MILLIGRAM, 1 EVERY 1 DAYS
     Route: 065
  107. PERINDOPRIL [Interacting]
     Active Substance: PERINDOPRIL
     Dosage: 120 MILLIGRAM, 1 EVERY 1 DAYS
     Route: 065
  108. PERINDOPRIL [Interacting]
     Active Substance: PERINDOPRIL
     Dosage: UNK
     Route: 065
  109. PERINDOPRIL [Interacting]
     Active Substance: PERINDOPRIL
     Dosage: UNK
     Route: 065
  110. PERINDOPRIL [Interacting]
     Active Substance: PERINDOPRIL
     Dosage: UNK
     Route: 065
  111. PERINDOPRIL [Interacting]
     Active Substance: PERINDOPRIL
     Dosage: UNK
     Route: 065
  112. PERINDOPRIL [Interacting]
     Active Substance: PERINDOPRIL
     Dosage: UNK
     Route: 065
  113. PERINDOPRIL [Interacting]
     Active Substance: PERINDOPRIL
     Dosage: UNK
     Route: 065
  114. PERINDOPRIL [Interacting]
     Active Substance: PERINDOPRIL
     Dosage: UNK
     Route: 065
  115. PERINDOPRIL [Interacting]
     Active Substance: PERINDOPRIL
     Dosage: UNK
     Route: 065
  116. PERINDOPRIL [Interacting]
     Active Substance: PERINDOPRIL
     Dosage: UNK
     Route: 065
  117. PERINDOPRIL [Interacting]
     Active Substance: PERINDOPRIL
     Dosage: UNK
     Route: 065
  118. PERINDOPRIL [Interacting]
     Active Substance: PERINDOPRIL
     Dosage: UNK
     Route: 065
  119. PERINDOPRIL [Interacting]
     Active Substance: PERINDOPRIL
     Dosage: UNK
     Route: 065
  120. PERINDOPRIL [Interacting]
     Active Substance: PERINDOPRIL
     Dosage: UNK
     Route: 065
  121. PERINDOPRIL [Interacting]
     Active Substance: PERINDOPRIL
     Dosage: UNK
     Route: 065
  122. PERINDOPRIL [Interacting]
     Active Substance: PERINDOPRIL
     Dosage: UNK
     Route: 065
  123. PERINDOPRIL [Interacting]
     Active Substance: PERINDOPRIL
     Dosage: UNK
     Route: 065
  124. PERINDOPRIL [Interacting]
     Active Substance: PERINDOPRIL
     Dosage: UNK
     Route: 065
  125. PERINDOPRIL [Interacting]
     Active Substance: PERINDOPRIL
     Dosage: UNK
     Route: 065
  126. PERINDOPRIL [Interacting]
     Active Substance: PERINDOPRIL
     Dosage: UNK
     Route: 065
  127. PERINDOPRIL [Interacting]
     Active Substance: PERINDOPRIL
     Dosage: UNK
     Route: 065
  128. PERINDOPRIL [Interacting]
     Active Substance: PERINDOPRIL
     Dosage: UNK
     Route: 065
  129. PERINDOPRIL [Interacting]
     Active Substance: PERINDOPRIL
     Dosage: UNK
     Route: 065
  130. PERINDOPRIL [Interacting]
     Active Substance: PERINDOPRIL
     Dosage: UNK
     Route: 065
  131. PERINDOPRIL [Interacting]
     Active Substance: PERINDOPRIL
     Dosage: UNK
     Route: 065
  132. PERINDOPRIL [Interacting]
     Active Substance: PERINDOPRIL
     Dosage: UNK
     Route: 065
  133. PERINDOPRIL [Interacting]
     Active Substance: PERINDOPRIL
     Dosage: UNK
     Route: 065
  134. PERINDOPRIL [Interacting]
     Active Substance: PERINDOPRIL
     Dosage: UNK
     Route: 065
  135. PERINDOPRIL [Interacting]
     Active Substance: PERINDOPRIL
     Dosage: UNK
     Route: 065
  136. PERINDOPRIL [Interacting]
     Active Substance: PERINDOPRIL
     Dosage: UNK
     Route: 065
  137. PERINDOPRIL [Interacting]
     Active Substance: PERINDOPRIL
     Dosage: UNK
     Route: 065
  138. PERINDOPRIL [Interacting]
     Active Substance: PERINDOPRIL
     Dosage: UNK
     Route: 065
  139. PERINDOPRIL [Interacting]
     Active Substance: PERINDOPRIL
     Dosage: UNK
     Route: 065
  140. PERINDOPRIL [Interacting]
     Active Substance: PERINDOPRIL
     Dosage: UNK
     Route: 065
  141. PERINDOPRIL [Interacting]
     Active Substance: PERINDOPRIL
     Dosage: UNK
     Route: 065
  142. DULOXETINE HYDROCHLORIDE [Interacting]
     Active Substance: DULOXETINE HYDROCHLORIDE
     Indication: Migraine
     Dosage: UNK
     Route: 065
  143. AIMOVIG [Interacting]
     Active Substance: ERENUMAB-AOOE
     Indication: Migraine
     Dosage: UNK
     Route: 065
  144. AIMOVIG [Interacting]
     Active Substance: ERENUMAB-AOOE
     Dosage: UNK
     Route: 058
  145. INDOMETHACIN [Interacting]
     Active Substance: INDOMETHACIN
     Indication: Migraine
     Dosage: UNK
     Route: 065
  146. INDOMETHACIN [Interacting]
     Active Substance: INDOMETHACIN
     Dosage: UNK
     Route: 065
  147. CYMBALTA [Interacting]
     Active Substance: DULOXETINE HYDROCHLORIDE
     Indication: Migraine
     Dosage: UNK
     Route: 065
  148. CYMBALTA [Interacting]
     Active Substance: DULOXETINE HYDROCHLORIDE
     Dosage: UNK
     Route: 065
  149. DULOXETINE HYDROCHLORIDE [Suspect]
     Active Substance: DULOXETINE HYDROCHLORIDE
     Indication: Migraine
     Dosage: UNK
     Route: 065
  150. PROPRANOLOL HYDROCHLORIDE [Suspect]
     Active Substance: PROPRANOLOL HYDROCHLORIDE
     Indication: Toxicity to various agents
     Dosage: UNK
     Route: 065
  151. PROPRANOLOL HYDROCHLORIDE [Suspect]
     Active Substance: PROPRANOLOL HYDROCHLORIDE
     Indication: Nephropathy toxic
     Dosage: UNK
     Route: 065
  152. PROPRANOLOL HYDROCHLORIDE [Suspect]
     Active Substance: PROPRANOLOL HYDROCHLORIDE
     Indication: Migraine
     Dosage: UNK
     Route: 065
  153. PROPRANOLOL HYDROCHLORIDE [Suspect]
     Active Substance: PROPRANOLOL HYDROCHLORIDE
     Indication: Hypertension
     Dosage: UNK
     Route: 065
  154. PERINDOPRIL ERBUMINE [Interacting]
     Active Substance: PERINDOPRIL ERBUMINE
     Indication: Toxicity to various agents
     Dosage: UNK
     Route: 065
  155. PERINDOPRIL ERBUMINE [Interacting]
     Active Substance: PERINDOPRIL ERBUMINE
     Indication: Nephropathy toxic
     Dosage: UNK
     Route: 065
  156. PERINDOPRIL ERBUMINE [Interacting]
     Active Substance: PERINDOPRIL ERBUMINE
     Indication: Hypertension
     Dosage: UNK
     Route: 065
  157. PERINDOPRIL ERBUMINE [Interacting]
     Active Substance: PERINDOPRIL ERBUMINE
     Indication: Migraine
  158. MIRTAZAPINE [Interacting]
     Active Substance: MIRTAZAPINE
     Indication: Migraine
     Dosage: UNK
     Route: 065
  159. MIRTAZAPINE [Interacting]
     Active Substance: MIRTAZAPINE
     Dosage: UNK
     Route: 065
  160. MIRTAZAPINE [Interacting]
     Active Substance: MIRTAZAPINE
     Dosage: UNK
     Route: 065
  161. MIRTAZAPINE [Interacting]
     Active Substance: MIRTAZAPINE
     Dosage: UNK
     Route: 065
  162. MIRTAZAPINE [Interacting]
     Active Substance: MIRTAZAPINE
     Dosage: UNK
     Route: 065
  163. MIRTAZAPINE [Interacting]
     Active Substance: MIRTAZAPINE
     Dosage: UNK
     Route: 048
  164. MIRTAZAPINE [Interacting]
     Active Substance: MIRTAZAPINE
     Indication: Migraine
     Dosage: UNK
     Route: 048
  165. ERENUMAB-AOOE [Interacting]
     Active Substance: ERENUMAB-AOOE
     Indication: Product used for unknown indication
     Dosage: UNK
     Route: 065
  166. ERENUMAB-AOOE [Interacting]
     Active Substance: ERENUMAB-AOOE
     Dosage: UNK
     Route: 065
  167. AMITRIPTYLINE [Interacting]
     Active Substance: AMITRIPTYLINE
     Indication: Migraine
     Dosage: UNK
     Route: 065
  168. CANDESARTAN [Interacting]
     Active Substance: CANDESARTAN
     Indication: Migraine
     Dosage: UNK
     Route: 048
  169. ONDANSETRON HYDROCHLORIDE [Interacting]
     Active Substance: ONDANSETRON HYDROCHLORIDE
     Indication: Migraine
     Dosage: UNK
     Route: 065
  170. ONDANSETRON HYDROCHLORIDE [Interacting]
     Active Substance: ONDANSETRON HYDROCHLORIDE
     Dosage: UNK
     Route: 065
  171. PROPRANOLOL [Interacting]
     Active Substance: PROPRANOLOL HYDROCHLORIDE
     Indication: Toxicity to various agents
     Dosage: UNK
     Route: 065
  172. PROPRANOLOL [Interacting]
     Active Substance: PROPRANOLOL HYDROCHLORIDE
     Indication: Nephropathy toxic
     Dosage: UNK
     Route: 065
  173. PROPRANOLOL [Interacting]
     Active Substance: PROPRANOLOL HYDROCHLORIDE
     Indication: Hypertension
     Dosage: UNK
     Route: 065
  174. PROPRANOLOL [Interacting]
     Active Substance: PROPRANOLOL HYDROCHLORIDE
     Indication: Migraine
     Dosage: UNK
     Route: 065
  175. PROPRANOLOL [Interacting]
     Active Substance: PROPRANOLOL HYDROCHLORIDE
     Dosage: UNK
     Route: 065
  176. PROPRANOLOL [Interacting]
     Active Substance: PROPRANOLOL HYDROCHLORIDE
     Dosage: UNK
     Route: 065
  177. PROPRANOLOL [Interacting]
     Active Substance: PROPRANOLOL HYDROCHLORIDE
     Dosage: UNK
     Route: 065
  178. PROPRANOLOL [Interacting]
     Active Substance: PROPRANOLOL HYDROCHLORIDE
     Indication: Toxicity to various agents
     Dosage: 120 MILLIGRAM  1 EVERY 1 DAYS
     Route: 065
  179. PROPRANOLOL [Interacting]
     Active Substance: PROPRANOLOL HYDROCHLORIDE
     Indication: Nephropathy toxic
     Dosage: 120 MILLIGRAM  1 EVERY 1 DAYS
     Route: 065
  180. PROPRANOLOL [Interacting]
     Active Substance: PROPRANOLOL HYDROCHLORIDE
     Indication: Hypertension
     Dosage: UNK
     Route: 065
  181. PROPRANOLOL [Interacting]
     Active Substance: PROPRANOLOL HYDROCHLORIDE
     Indication: Migraine
     Dosage: UNK
     Route: 065
  182. PROPRANOLOL [Interacting]
     Active Substance: PROPRANOLOL HYDROCHLORIDE
     Dosage: UNK
     Route: 065
  183. PROPRANOLOL [Interacting]
     Active Substance: PROPRANOLOL HYDROCHLORIDE
     Dosage: UNK
     Route: 065
  184. PROPRANOLOL [Interacting]
     Active Substance: PROPRANOLOL HYDROCHLORIDE
     Dosage: 120 MILLIGRAM  1 EVERY 1 DAYS
     Route: 048
  185. PROPRANOLOL [Interacting]
     Active Substance: PROPRANOLOL HYDROCHLORIDE
     Dosage: UNK
     Route: 048
  186. PROPRANOLOL [Interacting]
     Active Substance: PROPRANOLOL HYDROCHLORIDE
     Indication: Toxicity to various agents
     Dosage: 120 MILLIGRAM  1 EVERY 1 DAYS
     Route: 065
  187. PROPRANOLOL [Interacting]
     Active Substance: PROPRANOLOL HYDROCHLORIDE
     Indication: Nephropathy toxic
     Dosage: 120 MILLIGRAM  1 EVERY 1 DAYS
     Route: 065
  188. PROPRANOLOL [Interacting]
     Active Substance: PROPRANOLOL HYDROCHLORIDE
     Indication: Hypertension
     Dosage: UNK
     Route: 065
  189. PROPRANOLOL [Interacting]
     Active Substance: PROPRANOLOL HYDROCHLORIDE
     Indication: Migraine
     Dosage: UNK
     Route: 065
  190. PROPRANOLOL [Interacting]
     Active Substance: PROPRANOLOL HYDROCHLORIDE
     Dosage: UNK
     Route: 065
  191. PROPRANOLOL [Interacting]
     Active Substance: PROPRANOLOL HYDROCHLORIDE
     Dosage: UNK
     Route: 065
  192. PROPRANOLOL HYDROCHLORIDE [Suspect]
     Active Substance: PROPRANOLOL HYDROCHLORIDE
     Indication: Toxicity to various agents
     Dosage: UNK
     Route: 065
  193. PROPRANOLOL HYDROCHLORIDE [Suspect]
     Active Substance: PROPRANOLOL HYDROCHLORIDE
     Indication: Nephropathy toxic
     Dosage: UNK
     Route: 065
  194. PROPRANOLOL HYDROCHLORIDE [Suspect]
     Active Substance: PROPRANOLOL HYDROCHLORIDE
     Indication: Hypertension
  195. DULOXETINE HYDROCHLORIDE [Interacting]
     Active Substance: DULOXETINE HYDROCHLORIDE
     Indication: Product used for unknown indication
     Dosage: UNK
     Route: 065
  196. DULOXETINE HYDROCHLORIDE [Interacting]
     Active Substance: DULOXETINE HYDROCHLORIDE
     Indication: Migraine
     Dosage: UNK
     Route: 065
  197. INDOMETHACIN [Interacting]
     Active Substance: INDOMETHACIN
     Indication: Migraine
     Dosage: UNK
     Route: 065
  198. INDOMETHACIN [Interacting]
     Active Substance: INDOMETHACIN
     Indication: Migraine
     Dosage: UNK
     Route: 065
  199. ERENUMAB-AOOE [Interacting]
     Active Substance: ERENUMAB-AOOE
     Indication: Product used for unknown indication
     Dosage: UNK
     Route: 058
  200. ONDANSETRON [Interacting]
     Active Substance: ONDANSETRON
     Indication: Migraine
     Dosage: UNK
     Route: 065
  201. ONDANSETRON [Interacting]
     Active Substance: ONDANSETRON
     Dosage: UNK
     Route: 065
  202. ONDANSETRON [Interacting]
     Active Substance: ONDANSETRON
     Dosage: UNK
     Route: 065
  203. ONDANSETRON [Interacting]
     Active Substance: ONDANSETRON
     Dosage: UNK
     Route: 065
  204. TOPIRAMATE [Interacting]
     Active Substance: TOPIRAMATE
     Indication: Migraine
     Dosage: UNK
     Route: 048
  205. TOPIRAMATE [Interacting]
     Active Substance: TOPIRAMATE
     Indication: Migraine
     Dosage: UNK
     Route: 065
  206. DOMPERIDONE MALEATE [Concomitant]
     Active Substance: DOMPERIDONE MALEATE
     Indication: Migraine
     Dosage: UNK
     Route: 048
  207. DOMPERIDONE MALEATE [Concomitant]
     Active Substance: DOMPERIDONE MALEATE
     Dosage: UNK
     Route: 065
  208. BOTULINUM TOXIN TYPE A [Concomitant]
     Active Substance: BOTULINUM TOXIN TYPE A
     Indication: Migraine
     Dosage: UNK (FORMULATION POWDER FOR SOLUTION )
     Route: 030
  209. BOTULINUM TOXIN TYPE A [Concomitant]
     Active Substance: BOTULINUM TOXIN TYPE A
     Dosage: UNK
     Route: 065
  210. DIVALPROEX SODIUM [Concomitant]
     Active Substance: DIVALPROEX SODIUM
     Indication: Migraine
     Dosage: UNK
     Route: 065
  211. DIVALPROEX SODIUM [Concomitant]
     Active Substance: DIVALPROEX SODIUM
     Dosage: UNK
     Route: 065
  212. DOMPERIDONE [Concomitant]
     Active Substance: DOMPERIDONE
     Indication: Migraine
     Dosage: UNK
     Route: 065
  213. DOMPERIDONE [Concomitant]
     Active Substance: DOMPERIDONE
     Dosage: UNK
     Route: 048
  214. DOMPERIDONE [Concomitant]
     Active Substance: DOMPERIDONE
     Dosage: UNK
     Route: 065
  215. DOMPERIDONE [Concomitant]
     Active Substance: DOMPERIDONE
     Dosage: UNK
     Route: 065
  216. BOTULINUM TOXIN TYPE A [Concomitant]
     Active Substance: BOTULINUM TOXIN TYPE A
     Indication: Migraine
     Dosage: UNK (FORMULATION: POWDER FOR SOLUTION FOR INJECTION/INFUSION)
     Route: 065
  217. AMITRIPTYLINE [Concomitant]
     Active Substance: AMITRIPTYLINE
     Indication: Migraine
     Dosage: UNK
     Route: 065

REACTIONS (14)
  - Toxicity to various agents [Unknown]
  - Drug interaction [Unknown]
  - Drug intolerance [Unknown]
  - Electrocardiogram QT prolonged [Unknown]
  - Serotonin syndrome [Unknown]
  - Mental disorder [Unknown]
  - Hypertension [Unknown]
  - Fall [Unknown]
  - Nephropathy toxic [Unknown]
  - Depressed level of consciousness [Unknown]
  - Contraindicated product administered [Unknown]
  - Off label use [Unknown]
  - Drug ineffective for unapproved indication [Unknown]
  - Drug ineffective [Unknown]
